FAERS Safety Report 14210809 (Version 1)
Quarter: 2017Q4

REPORT INFORMATION
  Report Type: Spontaneous
  Country: US (occurrence: US)
  Receive Date: 20171121
  Receipt Date: 20171121
  Transmission Date: 20180321
  Serious: No
  Sender: FDA-Public Use
  Company Number: US-BAUSCH-BL-2017-005372

PATIENT
  Age: 68 Year
  Sex: Female
  Weight: 63.56 kg

DRUGS (2)
  1. LOTEMAX [Suspect]
     Active Substance: LOTEPREDNOL ETABONATE
     Dosage: 1 DROP 4 TIMES?RIGHT EYE
     Route: 047
     Dates: start: 20170222
  2. LOTEMAX [Suspect]
     Active Substance: LOTEPREDNOL ETABONATE
     Indication: POSTOPERATIVE CARE
     Dosage: 1 DROP 4 TIMES?LEFT EYE
     Route: 047
     Dates: start: 20170208

REACTIONS (2)
  - No adverse event [Unknown]
  - Drug prescribing error [Unknown]
